FAERS Safety Report 7207038-X (Version None)
Quarter: 2011Q1

REPORT INFORMATION
  Report Type: 
  Country: None (occurrence: None)
  Receive Date: 20110103
  Receipt Date: 20101220
  Transmission Date: 20110831
  Serious: Yes (Other)
  Sender: FDA-Public Use
  Company Number: B0687536A

PATIENT
  Sex: Female

DRUGS (5)
  1. AROPAX [Suspect]
     Indication: INJURY
     Dosage: .5TAB PER DAY
     Route: 065
  2. PANADOL OSTEO [Concomitant]
     Indication: OSTEOARTHRITIS
     Route: 065
     Dates: start: 20091130
  3. PREMARIN [Concomitant]
     Indication: HORMONE REPLACEMENT THERAPY
     Dates: start: 20080101
  4. PRILOSEC [Concomitant]
     Indication: GASTROOESOPHAGEAL REFLUX DISEASE
     Route: 065
     Dates: start: 20101202
  5. LEVOTHYROXINE SODIUM [Concomitant]
     Indication: HYPOTHYROIDISM
     Dosage: 100MG PER DAY
     Dates: start: 20080101

REACTIONS (8)
  - RASH PRURITIC [None]
  - ASTHENIA [None]
  - DEPENDENCE [None]
  - ILL-DEFINED DISORDER [None]
  - THERAPEUTIC RESPONSE UNEXPECTED [None]
  - RASH [None]
  - DERMATITIS [None]
  - MUSCULOSKELETAL STIFFNESS [None]
